FAERS Safety Report 20144567 (Version 1)
Quarter: 2021Q4

REPORT INFORMATION
  Report Type: Spontaneous
  Country: US (occurrence: US)
  Receive Date: 20211203
  Receipt Date: 20211203
  Transmission Date: 20220304
  Serious: No
  Sender: FDA-Public Use
  Company Number: DE-BoehringerIngelheim-2021-BI-141446

PATIENT
  Sex: Male

DRUGS (1)
  1. OFEV [Suspect]
     Active Substance: NINTEDANIB
     Indication: Product used for unknown indication
     Route: 065

REACTIONS (4)
  - Disorientation [Unknown]
  - Balance disorder [Unknown]
  - Fall [Unknown]
  - Joint dislocation [Unknown]
